FAERS Safety Report 16896493 (Version 1)
Quarter: 2019Q4

REPORT INFORMATION
  Report Type: Report from Study
  Country: US (occurrence: US)
  Receive Date: 20191008
  Receipt Date: 20191008
  Transmission Date: 20200122
  Serious: No
  Sender: FDA-Public Use
  Company Number: US-EMD SERONO-9108532

PATIENT
  Age: 32 Year
  Sex: Male

DRUGS (1)
  1. MAVENCLAD [Suspect]
     Active Substance: CLADRIBINE
     Indication: MULTIPLE SCLEROSIS
     Dosage: FIRST CYCLE TREATMENT
     Route: 048
     Dates: start: 20190706, end: 20190712

REACTIONS (9)
  - Headache [Unknown]
  - Fall [Not Recovered/Not Resolved]
  - Emotional distress [Unknown]
  - Pain [Unknown]
  - Gait disturbance [Unknown]
  - Balance disorder [Unknown]
  - Anger [Unknown]
  - Irritability [Unknown]
  - Depressed mood [Unknown]

NARRATIVE: CASE EVENT DATE: 201907
